FAERS Safety Report 4880735-7 (Version None)
Quarter: 2006Q1

REPORT INFORMATION
  Report Type: 
  Country: None (occurrence: None)
  Receive Date: 20060113
  Receipt Date: 20051017
  Transmission Date: 20060701
  Serious: Yes (Hospitalization)
  Sender: FDA-Public Use
  Company Number: US-MERCK-0510USA07826

PATIENT
  Age: 51 Year
  Sex: Male
  Weight: 99 kg

DRUGS (9)
  1. VIOXX [Suspect]
     Indication: RHEUMATOID ARTHRITIS
     Route: 048
     Dates: start: 19990901, end: 20030908
  2. CARISOPRODOL [Concomitant]
     Indication: ARTHRALGIA
     Route: 065
     Dates: start: 20020401
  3. HYDROCODONE BITARTRATE [Concomitant]
     Indication: ARTHRITIS
     Route: 065
     Dates: start: 20020401
  4. HYDROCODONE BITARTRATE [Concomitant]
     Indication: PAIN
     Route: 065
     Dates: start: 20020401
  5. POTASSIUM (UNSPECIFIED) [Concomitant]
     Route: 065
  6. CEPHALEXIN [Concomitant]
     Indication: BACTERIAL INFECTION
     Route: 065
  7. OXYCODONE [Concomitant]
     Indication: ARTHRITIS
     Route: 065
     Dates: start: 20030601, end: 20030701
  8. OXYCODONE [Concomitant]
     Indication: PAIN
     Route: 065
     Dates: start: 20030601, end: 20030701
  9. AMOXICILLIN [Concomitant]
     Indication: BACTERIAL INFECTION
     Route: 065

REACTIONS (12)
  - ARTERIOSCLEROSIS [None]
  - BLOOD CHOLESTEROL INCREASED [None]
  - BRONCHIAL DISORDER [None]
  - CORONARY ARTERY STENOSIS [None]
  - CYST [None]
  - HYPERTENSION [None]
  - MYOCARDIAL INFARCTION [None]
  - OEDEMA PERIPHERAL [None]
  - RENAL ARTERY STENOSIS [None]
  - ROTATOR CUFF SYNDROME [None]
  - SPINAL DISORDER [None]
  - VENTRICULAR HYPERTROPHY [None]
